FAERS Safety Report 8017377-0 (Version None)
Quarter: 2012Q1

REPORT INFORMATION
  Report Type: 
  Country: None (occurrence: None)
  Receive Date: 20120102
  Receipt Date: 20111222
  Transmission Date: 20120608
  Serious: Yes (Hospitalization, Congenital Anomaly)
  Sender: FDA-Public Use
  Company Number: US-ROCHE-1006739

PATIENT
  Weight: 3.178 kg

DRUGS (1)
  1. OMALIZUMAB [Suspect]
     Indication: ASTHMA
     Route: 064
     Dates: start: 20110113

REACTIONS (3)
  - LARYNGOMALACIA [None]
  - MATERNAL EXPOSURE TIMING UNSPECIFIED [None]
  - FOETAL HEART RATE DISORDER [None]
